FAERS Safety Report 7908822-7 (Version None)
Quarter: 2011Q4

REPORT INFORMATION
  Report Type: 
  Country: None (occurrence: None)
  Receive Date: 20111111
  Receipt Date: 20111101
  Transmission Date: 20120403
  Serious: Yes (Other)
  Sender: FDA-Public Use
  Company Number: US-BAYER-2011-052526

PATIENT
  Age: 44 Year
  Sex: Female
  Weight: 60 kg

DRUGS (7)
  1. YAZ [Suspect]
     Indication: CONTRACEPTION
     Dosage: UNK
     Dates: start: 20080101, end: 20080101
  2. TYLENOL EXTRA STRENGTH (ACETAMINOPHEN) [Concomitant]
     Indication: HEADACHE
     Dosage: 500 MG, PRN
     Route: 048
  3. OMEPRAZOLE [Concomitant]
     Indication: DYSPEPSIA
     Dosage: 20 MG, QD
     Route: 048
  4. PERCOCET [Concomitant]
     Indication: NECK PAIN
  5. FENTANYL [Concomitant]
     Indication: NECK PAIN
     Dosage: UNK
  6. CELEXA [Concomitant]
     Indication: ANXIETY
     Dosage: 40 MG, QD
     Route: 048
     Dates: start: 20080201
  7. CLARITIN [Concomitant]
     Dosage: 10 MG, QD
     Route: 048

REACTIONS (3)
  - JUGULAR VEIN THROMBOSIS [None]
  - FACIAL PAIN [None]
  - NECK PAIN [None]
